FAERS Safety Report 8306930-2 (Version None)
Quarter: 2012Q2

REPORT INFORMATION
  Report Type: 
  Country: None (occurrence: None)
  Receive Date: 20120419
  Receipt Date: 20120417
  Transmission Date: 20120825
  Serious: Yes (Hospitalization, Other)
  Sender: FDA-Public Use
  Company Number: ADR-2010-9227

PATIENT
  Age: 56 Year
  Sex: Male

DRUGS (2)
  1. LIORESAL [Suspect]
     Indication: MUSCLE SPASTICITY
     Dosage: 189 MCG, DAILY, INTRATH
     Route: 037
  2. MORPHINE [Concomitant]

REACTIONS (7)
  - MUSCLE SPASTICITY [None]
  - DEVICE MALFUNCTION [None]
  - DRUG WITHDRAWAL SYNDROME [None]
  - PAIN IN EXTREMITY [None]
  - DEVICE BATTERY ISSUE [None]
  - LYMPHOEDEMA [None]
  - DEVICE OCCLUSION [None]
